FAERS Safety Report 6386420-7 (Version None)
Quarter: 2009Q3

REPORT INFORMATION
  Report Type: 
  Country: None (occurrence: None)
  Receive Date: 20090930
  Receipt Date: 20090930
  Transmission Date: 20100115
  Serious: Yes (Hospitalization, Disabling)
  Sender: FDA-Public Use
  Company Number: None

PATIENT
  Age: 48 Year
  Sex: Male
  Weight: 131.5 kg

DRUGS (1)
  1. CRESTOR [Suspect]
     Indication: DYSLIPIDAEMIA
     Dosage: 10MG DAILY PO 047
     Route: 048
     Dates: start: 20080601, end: 20080701

REACTIONS (5)
  - ABSCESS LIMB [None]
  - DRUG HYPERSENSITIVITY [None]
  - LEUKOCYTOCLASTIC VASCULITIS [None]
  - OSTEOMYELITIS [None]
  - TOE AMPUTATION [None]
